FAERS Safety Report 4526809-1 (Version None)
Quarter: 2004Q4

REPORT INFORMATION
  Report Type: 
  Country: None (occurrence: None)
  Receive Date: 20041213
  Receipt Date: 20041126
  Transmission Date: 20050328
  Serious: Yes (Other)
  Sender: FDA-Public Use
  Company Number: S04-UKI-07954-01

PATIENT
  Age: 35 Year
  Sex: Female

DRUGS (5)
  1. CIPRALEX (ESCITALOPRAM) [Suspect]
     Indication: ANXIETY
     Dosage: 10 MG QD PO
     Route: 048
     Dates: start: 20041022, end: 20041027
  2. DIAZEPAM [Concomitant]
  3. BUSPIRONE [Concomitant]
  4. TRIMETHOPRIM [Concomitant]
  5. EUGYNON [Concomitant]

REACTIONS (1)
  - DYSKINESIA [None]
